FAERS Safety Report 10803829 (Version 14)
Quarter: 2018Q3

REPORT INFORMATION
  Report Type: Report from Study
  Country: NL (occurrence: NL)
  Receive Date: 20150217
  Receipt Date: 20180718
  Transmission Date: 20181010
  Serious: Yes (Hospitalization, Other)
  Sender: FDA-Public Use
  Company Number: NL-SA-2015SA004137

PATIENT
  Age: 39 Year
  Sex: Male

DRUGS (13)
  1. METHYLPREDNISOLONE. [Concomitant]
     Active Substance: METHYLPREDNISOLONE
     Indication: PROPHYLAXIS
     Dosage: 1000 MG,QD
     Route: 042
     Dates: start: 20141117, end: 20141117
  2. METHYLPREDNISOLONE. [Concomitant]
     Active Substance: METHYLPREDNISOLONE
     Dosage: 500 MG,QD
     Route: 042
     Dates: start: 20141121, end: 20141121
  3. ALEMTUZUMAB [Suspect]
     Active Substance: ALEMTUZUMAB
     Dosage: 12 MG,QD
     Route: 041
     Dates: start: 20141124, end: 20141125
  4. METHYLPREDNISOLONE. [Concomitant]
     Active Substance: METHYLPREDNISOLONE
     Dosage: 1000 MG,QD
     Route: 042
     Dates: start: 20141120, end: 20141120
  5. PANTOPRAZOLE [Concomitant]
     Active Substance: PANTOPRAZOLE
     Indication: PROPHYLAXIS
     Dosage: 40 MG,QD
     Route: 048
     Dates: start: 20141117, end: 20141125
  6. ALEMTUZUMAB [Suspect]
     Active Substance: ALEMTUZUMAB
     Indication: MULTIPLE SCLEROSIS RELAPSE
     Dosage: 12 MG,QD
     Route: 041
     Dates: start: 20141117, end: 20141117
  7. METHYLPREDNISOLONE. [Concomitant]
     Active Substance: METHYLPREDNISOLONE
     Dosage: 1000 MG,QD
     Route: 042
     Dates: start: 20151123, end: 20151125
  8. ALEMTUZUMAB [Suspect]
     Active Substance: ALEMTUZUMAB
     Dosage: 12 MG,QD
     Route: 041
     Dates: start: 20141120, end: 20141121
  9. VALACICLOVIR [Concomitant]
     Active Substance: VALACYCLOVIR HYDROCHLORIDE
     Indication: PROPHYLAXIS
     Dosage: 500 MG,QD
     Route: 048
     Dates: start: 20141117, end: 20141222
  10. ALEMTUZUMAB [Suspect]
     Active Substance: ALEMTUZUMAB
     Dosage: 12 MG,QD
     Route: 041
     Dates: start: 20151123, end: 20151125
  11. METHYLPREDNISOLONE. [Concomitant]
     Active Substance: METHYLPREDNISOLONE
     Dosage: 500 MG,QD
     Route: 042
     Dates: start: 20141124, end: 20141125
  12. PARACETAMOL [Concomitant]
     Active Substance: ACETAMINOPHEN
     Indication: PROPHYLAXIS
     Dosage: 1500 MG,QD
     Route: 048
     Dates: start: 20141117, end: 20141125
  13. CLEMASTINE [Concomitant]
     Active Substance: CLEMASTINE
     Indication: PROPHYLAXIS
     Dosage: 1 MG,QD
     Route: 048
     Dates: start: 20141117, end: 20141125

REACTIONS (12)
  - Leukocytosis [Recovered/Resolved]
  - Diarrhoea [Recovered/Resolved]
  - Aspartate aminotransferase increased [Recovered/Resolved]
  - Blood lactate dehydrogenase increased [Recovered/Resolved]
  - Leukopenia [Recovered/Resolved]
  - Polycythaemia [Not Recovered/Not Resolved]
  - Lymphopenia [Recovered/Resolved]
  - Hepatitis E [Recovered/Resolved]
  - Alanine aminotransferase increased [Recovered/Resolved]
  - Thrombocytopenia [Recovered/Resolved]
  - Leukocytosis [Recovered/Resolved]
  - C-reactive protein increased [Recovered/Resolved]

NARRATIVE: CASE EVENT DATE: 20141118
